FAERS Safety Report 10391051 (Version 1)
Quarter: 2014Q3

REPORT INFORMATION
  Report Type: Spontaneous
  Country: US (occurrence: US)
  Receive Date: 20140818
  Receipt Date: 20140818
  Transmission Date: 20150326
  Serious: Yes (Hospitalization, Other)
  Sender: FDA-Public Use
  Company Number: US-ASTRAZENECA-2014SE58707

PATIENT
  Age: 60 Year
  Sex: Male

DRUGS (2)
  1. MEDICINE FOR HYPERTENSION [Concomitant]
     Indication: HYPERTENSION
  2. BRILINTA [Suspect]
     Active Substance: TICAGRELOR
     Indication: CORONARY ARTERIAL STENT INSERTION
     Route: 048
     Dates: start: 201404, end: 20140805

REACTIONS (4)
  - Drug dose omission [Unknown]
  - Coronary artery thrombosis [Unknown]
  - Gastrointestinal haemorrhage [Unknown]
  - Haemoglobin decreased [Unknown]

NARRATIVE: CASE EVENT DATE: 20140805
